FAERS Safety Report 5179391-2 (Version None)
Quarter: 2006Q4

REPORT INFORMATION
  Report Type: 
  Country: None (occurrence: None)
  Receive Date: 20061211
  Receipt Date: 20061129
  Transmission Date: 20070319
  Serious: Yes (Death)
  Sender: FDA-Public Use
  Company Number: 150406USA

PATIENT
  Age: 35 Year
  Sex: Male
  Weight: 122.0176 kg

DRUGS (5)
  1. HALOPERIDOL [Suspect]
     Indication: SCHIZOPHRENIA
     Dosage: 5 MG (5 MG/ML), INTRAMUSCULAR
     Route: 030
     Dates: start: 20060701
  2. RISPERIDONE [Concomitant]
  3. CLOZAPINE [Concomitant]
  4. VALPROATE SODIUM [Concomitant]
  5. FLUOXETINE HYDROCHLORIDE [Concomitant]

REACTIONS (5)
  - DISEASE RECURRENCE [None]
  - DRUG LEVEL INCREASED [None]
  - DRUG TOXICITY [None]
  - PSYCHOTIC DISORDER [None]
  - SUDDEN DEATH [None]
